FAERS Safety Report 5347029-7 (Version None)
Quarter: 2007Q2

REPORT INFORMATION
  Report Type: 
  Country: None (occurrence: None)
  Receive Date: 20070604
  Receipt Date: 20070329
  Transmission Date: 20071010
  Serious: No
  Sender: FDA-Public Use
  Company Number: TCI2006A05689

PATIENT
  Age: 44 Year
  Sex: Female

DRUGS (1)
  1. LEUPROLIDE ACETATE [Suspect]
     Indication: UTERINE LEIOMYOMA
     Dosage: 3.75 MG (3.75 MG, 1 IN 28 D) SUBCUTANEOUS
     Route: 058
     Dates: start: 20061030, end: 20061127

REACTIONS (1)
  - CYANOSIS [None]
